FAERS Safety Report 10936631 (Version 1)
Quarter: 2015Q1

REPORT INFORMATION
  Report Type: Spontaneous
  Country: US (occurrence: None)
  Receive Date: 20150129
  Receipt Date: 20150129
  Transmission Date: 20150721
  Serious: No
  Sender: FDA-Public Use
  Company Number: A-NJ2014-106780

PATIENT
  Age: 66 Year
  Sex: Female

DRUGS (1)
  1. OPSUMIT [Suspect]
     Active Substance: MACITENTAN
     Indication: CONNECTIVE TISSUE DISORDER
     Route: 048
     Dates: start: 20141001

REACTIONS (7)
  - Viral infection [None]
  - Oropharyngeal pain [None]
  - Cough [None]
  - Asthenia [None]
  - Rhinorrhoea [None]
  - Pain [None]
  - Chest pain [None]

NARRATIVE: CASE EVENT DATE: 201410
